FAERS Safety Report 24852130 (Version 1)
Quarter: 2025Q1

REPORT INFORMATION
  Report Type: Spontaneous
  Country: US (occurrence: US)
  Receive Date: 20250116
  Receipt Date: 20250116
  Transmission Date: 20250408
  Serious: No
  Sender: SANOFI AVENTIS
  Company Number: US-SA-2025SA010402

PATIENT
  Age: 28 Year
  Sex: Female
  Weight: 79.55 kg

DRUGS (2)
  1. DUPIXENT [Suspect]
     Active Substance: DUPILUMAB
     Indication: Eosinophilic oesophagitis
     Dosage: 300 MG, QW
     Route: 058
     Dates: start: 202311
  2. FLUOXETINE HYDROCHLORIDE [Concomitant]
     Active Substance: FLUOXETINE HYDROCHLORIDE

REACTIONS (4)
  - Dysphagia [Unknown]
  - Choking sensation [Not Recovered/Not Resolved]
  - Regurgitation [Not Recovered/Not Resolved]
  - Injection site pruritus [Unknown]

NARRATIVE: CASE EVENT DATE: 20240101
